FAERS Safety Report 5910443-2 (Version None)
Quarter: 2008Q4

REPORT INFORMATION
  Report Type: 
  Country: None (occurrence: None)
  Receive Date: 20081007
  Receipt Date: 20080930
  Transmission Date: 20090506
  Serious: Yes (Hospitalization)
  Sender: FDA-Public Use
  Company Number: BR-ASTRAZENECA-2007UW18792

PATIENT
  Age: 68 Year
  Sex: Female

DRUGS (2)
  1. ATACAND [Suspect]
     Indication: HYPERTENSION
     Route: 048
  2. ATACAND [Suspect]
     Route: 048
     Dates: start: 20050101

REACTIONS (1)
  - BLOOD PRESSURE INCREASED [None]
